FAERS Safety Report 7508544-0 (Version None)
Quarter: 2011Q2

REPORT INFORMATION
  Report Type: 
  Country: None (occurrence: None)
  Receive Date: 20110527
  Receipt Date: 20110506
  Transmission Date: 20111010
  Serious: No
  Sender: FDA-Public Use
  Company Number: US-B.I. PHARMACEUTICALS,INC./RIDGEFIELD-2011-BP-09644BP

PATIENT
  Sex: Male

DRUGS (10)
  1. ATENOLOL [Concomitant]
     Dosage: 100 MG
  2. METFORMIN HCL [Concomitant]
     Dosage: 1000 MG
  3. ALTACE [Concomitant]
     Dosage: 5 MG
  4. PRADAXA [Suspect]
     Indication: ATRIAL FIBRILLATION
     Dosage: 300 MG
     Route: 048
     Dates: start: 20110201
  5. LIPITOR [Concomitant]
     Dosage: 80 MG
  6. SALINE NASAL SPRAY [Concomitant]
  7. CEFADROXIL [Concomitant]
  8. LOVAZA [Concomitant]
  9. ACIDOPHILUS PROBIOTICS [Concomitant]
  10. FLUTICASONE PROPIONATE [Concomitant]
     Indication: RHINITIS

REACTIONS (2)
  - DYSPEPSIA [None]
  - URINARY TRACT INFECTION [None]
